FAERS Safety Report 8516544-7 (Version None)
Quarter: 2012Q3

REPORT INFORMATION
  Report Type: 
  Country: None (occurrence: None)
  Receive Date: 20120711
  Receipt Date: 20120711
  Transmission Date: 20120928
  Serious: Yes (Other)
  Sender: FDA-Public Use
  Company Number: None

PATIENT
  Age: 83 Year
  Sex: Female

DRUGS (1)
  1. AMBIEN [Suspect]
     Indication: INITIAL INSOMNIA
     Dosage: 5MG ONCE DAILY PO
     Route: 048
     Dates: start: 20120704, end: 20120705

REACTIONS (2)
  - HEADACHE [None]
  - DIZZINESS [None]
